FAERS Safety Report 8519039 (Version 2)
Quarter: 2012Q4

REPORT INFORMATION
  Report Type: 
  Country: US (occurrence: US)
  Receive Date: 20120418
  Receipt Date: 20121221
  Transmission Date: 20130627
  Serious: Yes (Hospitalization)
  Sender: FDA-Public Use
  Company Number: US-BAYER-2012-036525

PATIENT
  Age: 16 Year
  Sex: Female
  Weight: 99.77 kg

DRUGS (12)
  1. YAZ [Suspect]
     Indication: MENSES IRREGULAR
     Dosage: UNK
     Dates: start: 200710, end: 20100414
  2. METFORMIN [Concomitant]
     Indication: PRE-DIABETES
     Dosage: 500 mg, QD
     Dates: start: 20100305
  3. METFORMIN [Concomitant]
     Indication: PRE-DIABETES
     Dosage: UNK
     Dates: start: 2007
  4. ACTOS [Concomitant]
     Indication: PRE-DIABETES
     Dosage: 30 mg,30 mg tab,
     Dates: start: 20100305
  5. ACTOS [Concomitant]
     Indication: PRE-DIABETES
     Dosage: UNK
     Dates: start: 2007
  6. BENADRYL [Concomitant]
     Dosage: 50 mg, UNK
     Dates: start: 20100305
  7. CETIRIZINE [Concomitant]
     Dosage: 10 mg, UNK
     Dates: start: 20100308
  8. IBUPROFEN [Concomitant]
     Dosage: 600 mg, UNK
     Route: 048
     Dates: start: 20100305
  9. TRAMADOL [Concomitant]
     Dosage: 50 mg tablet, 1 [every] day
     Route: 048
     Dates: start: 20100414
  10. ZOFRAN [Concomitant]
     Indication: VOMITING
  11. ZOFRAN [Concomitant]
     Indication: NAUSEA
  12. ROCEPHIN [Concomitant]
     Dosage: 1 g, BID

REACTIONS (13)
  - Cholecystectomy [None]
  - Cholecystitis chronic [None]
  - Injury [None]
  - Emotional distress [None]
  - Scar [None]
  - Abdominal distension [None]
  - Flatulence [None]
  - Dyspepsia [None]
  - Constipation [None]
  - Diarrhoea [None]
  - Anxiety [None]
  - Depression [None]
  - Off label use [None]
